FAERS Safety Report 5778810-8 (Version None)
Quarter: 2008Q2

REPORT INFORMATION
  Report Type: 
  Country: None (occurrence: None)
  Receive Date: 20080617
  Receipt Date: 20080604
  Transmission Date: 20081010
  Serious: Yes (Hospitalization, Other)
  Sender: FDA-Public Use
  Company Number: 235316J08USA

PATIENT
  Age: 33 Year
  Sex: Female

DRUGS (6)
  1. REBIF [Suspect]
     Indication: MULTIPLE SCLEROSIS
     Dosage: NOT REPORTED, NOT REPORTED, NOT REPORTED
     Dates: start: 20020101, end: 20080530
  2. TOPAMAX [Concomitant]
  3. CALCIUM WITH VITAMIN D (CALCIUM WITH VITAMIN D) [Concomitant]
  4. BACLOFEN [Concomitant]
  5. OXYBUTYNIN CHLORIDE [Concomitant]
  6. LEXAPRO [Concomitant]

REACTIONS (2)
  - CONVULSION [None]
  - MULTIPLE SCLEROSIS RELAPSE [None]
